FAERS Safety Report 24833858 (Version 1)
Quarter: 2025Q1

REPORT INFORMATION
  Report Type: Spontaneous
  Country: US (occurrence: US)
  Receive Date: 20250112
  Receipt Date: 20250112
  Transmission Date: 20250408
  Serious: No
  Sender: ALEXION PHARMACEUTICALS
  Company Number: US-AstraZeneca-CH-00779064AP

PATIENT

DRUGS (2)
  1. BUDESONIDE\FORMOTEROL FUMARATE [Suspect]
     Active Substance: BUDESONIDE\FORMOTEROL FUMARATE
     Indication: Asthma
     Route: 065
  2. AIRSUPRA [Suspect]
     Active Substance: ALBUTEROL SULFATE\BUDESONIDE
     Route: 065

REACTIONS (7)
  - Cough [Unknown]
  - Dysphonia [Unknown]
  - Product dose omission issue [Unknown]
  - Overdose [Unknown]
  - Incorrect dose administered [Unknown]
  - Device malfunction [Unknown]
  - Product cleaning inadequate [Unknown]
